FAERS Safety Report 8678458 (Version 2)
Quarter: 2012Q4

REPORT INFORMATION
  Report Type: Report from Study
  Country: BR (occurrence: BR)
  Receive Date: 20120723
  Receipt Date: 20121114
  Transmission Date: 20130627
  Serious: Yes (Other)
  Sender: FDA-Public Use
  Company Number: BR-ROCHE-1050236

PATIENT
  Sex: Female
  Weight: 67 kg

DRUGS (7)
  1. RITUXIMAB [Suspect]
     Indication: PRODUCT USED FOR UNKNOWN INDICATION
     Route: 042
     Dates: start: 20091201, end: 20110810
  2. METICORTEN [Concomitant]
     Route: 065
  3. ARAVA [Concomitant]
  4. FLOTAC [Concomitant]
     Route: 065
  5. ATORVASTATIN [Concomitant]
     Route: 065
  6. PRESS PLUS [Concomitant]
     Route: 065
  7. DIAZEPAM [Concomitant]

REACTIONS (4)
  - Intervertebral disc protrusion [Unknown]
  - Influenza [Unknown]
  - Arthralgia [Unknown]
  - Productive cough [Unknown]
